FAERS Safety Report 12059735 (Version 1)
Quarter: 2016Q1

REPORT INFORMATION
  Report Type: Spontaneous
  Country: US (occurrence: US)
  Receive Date: 20160210
  Receipt Date: 20160210
  Transmission Date: 20160526
  Serious: Yes (Other)
  Sender: FDA-Public Use
  Company Number: US-ASTRAZENECA-2016SE12150

PATIENT
  Sex: Female

DRUGS (2)
  1. IBRANCE [Suspect]
     Active Substance: PALBOCICLIB
     Route: 065
  2. ARIMIDEX [Suspect]
     Active Substance: ANASTROZOLE
     Route: 048

REACTIONS (7)
  - Bone cancer metastatic [Unknown]
  - Throat irritation [Unknown]
  - Respiratory tract infection [Unknown]
  - Neuralgia [Unknown]
  - Sinus headache [Unknown]
  - Respiratory disorder [Unknown]
  - Memory impairment [Unknown]
